FAERS Safety Report 16573732 (Version 2)
Quarter: 2019Q3

REPORT INFORMATION
  Report Type: Spontaneous
  Country: DE (occurrence: DE)
  Receive Date: 20190715
  Receipt Date: 20190830
  Transmission Date: 20191004
  Serious: Yes (Hospitalization, Other)
  Sender: FDA-Public Use
  Company Number: DE-JNJFOC-20190703807

PATIENT
  Age: 69 Year
  Sex: Male
  Weight: 80 kg

DRUGS (1)
  1. IMBRUVICA [Suspect]
     Active Substance: IBRUTINIB
     Indication: PRODUCT USED FOR UNKNOWN INDICATION
     Route: 048

REACTIONS (5)
  - Cardiac disorder [Recovering/Resolving]
  - Atrial fibrillation [Unknown]
  - Thrombocytopenia [Unknown]
  - Asthenia [Recovering/Resolving]
  - Generalised oedema [Unknown]

NARRATIVE: CASE EVENT DATE: 20190624
